FAERS Safety Report 8772910 (Version 1)
Quarter: 2012Q4

REPORT INFORMATION
  Report Type: Report from Study
  Country: CA (occurrence: CA)
  Receive Date: 20120907
  Receipt Date: 20120907
  Transmission Date: 20130627
  Serious: Yes (Other)
  Sender: FDA-Public Use
  Company Number: CA-JNJFOC-20120814698

PATIENT
  Sex: Female
  Weight: 89.6 kg

DRUGS (2)
  1. REMICADE [Suspect]
     Indication: CROHN^S DISEASE
     Route: 042
  2. PANTOLOC [Concomitant]
     Route: 065

REACTIONS (1)
  - Spinal meningioma benign [Unknown]
